FAERS Safety Report 10868902 (Version 1)
Quarter: 2015Q1

REPORT INFORMATION
  Report Type: Spontaneous
  Country: US (occurrence: US)
  Receive Date: 20150225
  Receipt Date: 20150225
  Transmission Date: 20150721
  Serious: No
  Sender: FDA-Public Use
  Company Number: US-MYLANLABS-2014SP001526

PATIENT
  Sex: Female

DRUGS (21)
  1. BACTRIM [Suspect]
     Active Substance: SULFAMETHOXAZOLE\TRIMETHOPRIM
  2. IMITREX [Concomitant]
     Active Substance: SUMATRIPTAN\SUMATRIPTAN SUCCINATE
  3. KETOPROFEN. [Suspect]
     Active Substance: KETOPROFEN
  4. AZITHROMYCIN [Suspect]
     Active Substance: AZITHROMYCIN ANHYDROUS
  5. DEPO-PROVERA [Concomitant]
     Active Substance: MEDROXYPROGESTERONE ACETATE
  6. CIPROFLOXACIN. [Suspect]
     Active Substance: CIPROFLOXACIN
  7. REBIF [Concomitant]
     Active Substance: INTERFERON BETA-1A
  8. VENLAFAXINE [Concomitant]
     Active Substance: VENLAFAXINE HYDROCHLORIDE
  9. VANCOMYCIN [Suspect]
     Active Substance: VANCOMYCIN
  10. PENICILLIN /00001805/ [Suspect]
     Active Substance: PENICILLIN V BENZATHINE
  11. DOXYCYCLINE. [Suspect]
     Active Substance: DOXYCYCLINE
  12. ERYTHROMYCIN. [Suspect]
     Active Substance: ERYTHROMYCIN
  13. BACLOFEN. [Concomitant]
     Active Substance: BACLOFEN
  14. LYRICA [Concomitant]
     Active Substance: PREGABALIN
  15. MELATONIN [Concomitant]
     Active Substance: MELATONIN
  16. TESSALON [Suspect]
     Active Substance: BENZONATATE
  17. MECLIZINE [Concomitant]
     Active Substance: MECLIZINE\MECLIZINE HYDROCHLORIDE
  18. FOSAMAX [Concomitant]
     Active Substance: ALENDRONATE SODIUM
  19. CHLORHEXIDINE GLUCONATE. [Concomitant]
     Active Substance: CHLORHEXIDINE GLUCONATE
  20. BENADRYL [Concomitant]
     Active Substance: DIPHENHYDRAMINE HYDROCHLORIDE
  21. VISTARIL [Concomitant]
     Active Substance: HYDROXYZINE PAMOATE

REACTIONS (1)
  - Drug hypersensitivity [Unknown]
